FAERS Safety Report 9641045 (Version 1)
Quarter: 2013Q4

REPORT INFORMATION
  Report Type: Spontaneous
  Country: AU (occurrence: AU)
  Receive Date: 20131023
  Receipt Date: 20131023
  Transmission Date: 20140711
  Serious: Yes (Hospitalization, Other)
  Sender: FDA-Public Use
  Company Number: AU-PFIZER INC-2013297726

PATIENT
  Age: 24 Year
  Sex: Female

DRUGS (1)
  1. LYRICA [Suspect]
     Indication: CONVULSION
     Dosage: 25 MG, UNK
     Dates: start: 20131016

REACTIONS (4)
  - Convulsion [Unknown]
  - Muscle twitching [Unknown]
  - Pain in jaw [Not Recovered/Not Resolved]
  - Facial pain [Not Recovered/Not Resolved]
